FAERS Safety Report 7155119-1 (Version None)
Quarter: 2010Q4

REPORT INFORMATION
  Report Type: 
  Country: None (occurrence: None)
  Receive Date: 20101214
  Receipt Date: 20100714
  Transmission Date: 20110411
  Serious: No
  Sender: FDA-Public Use
  Company Number: US-AMGEN-KDL354158

PATIENT

DRUGS (3)
  1. ENBREL [Suspect]
     Indication: RHEUMATOID ARTHRITIS
     Dosage: UNK UNK, UNK
  2. ASPIRIN [Concomitant]
     Dosage: UNK UNK, UNK
  3. HYDROXYZINE HCL [Concomitant]
     Dosage: UNK UNK, UNK

REACTIONS (1)
  - URTICARIA [None]
